FAERS Safety Report 7311482-X (Version None)
Quarter: 2011Q1

REPORT INFORMATION
  Report Type: 
  Country: None (occurrence: None)
  Receive Date: 20110224
  Receipt Date: 20110214
  Transmission Date: 20110831
  Serious: Yes (Other)
  Sender: FDA-Public Use
  Company Number: PHFR2010IE06003

PATIENT
  Sex: Male

DRUGS (3)
  1. LIPITOR [Concomitant]
     Dosage: 10 MG, QD
  2. CLOZARIL [Suspect]
     Indication: SCHIZOPHRENIA
     Dosage: 500 MG, QD
     Route: 048
     Dates: start: 20021025
  3. MOVICOL [Concomitant]
     Dosage: 1 DF, QD
     Route: 048

REACTIONS (7)
  - HAEMORRHOIDS [None]
  - NEUTROPHIL COUNT DECREASED [None]
  - GENERAL PHYSICAL HEALTH DETERIORATION [None]
  - CONSTIPATION [None]
  - BLOOD ALKALINE PHOSPHATASE INCREASED [None]
  - POLYCYTHAEMIA [None]
  - WHITE BLOOD CELL COUNT DECREASED [None]
